FAERS Safety Report 5882395-5 (Version None)
Quarter: 2008Q3

REPORT INFORMATION
  Report Type: 
  Country: None (occurrence: None)
  Receive Date: 20080913
  Receipt Date: 20080731
  Transmission Date: 20090109
  Serious: No
  Sender: FDA-Public Use
  Company Number: US-ABBOTT-08P-163-0468262-00

PATIENT
  Sex: Female
  Weight: 45.672 kg

DRUGS (11)
  1. HUMIRA [Suspect]
     Indication: RHEUMATOID ARTHRITIS
     Route: 050
     Dates: start: 20080714
  2. METHOTREXATE [Concomitant]
     Indication: RHEUMATOID ARTHRITIS
     Route: 050
     Dates: start: 20000101
  3. PREDNISONE TAB [Concomitant]
     Indication: RHEUMATOID ARTHRITIS
     Route: 048
     Dates: start: 20000101
  4. PREDNISONE TAB [Concomitant]
     Route: 048
     Dates: start: 20080701
  5. FOLIC ACID [Concomitant]
     Indication: VITAMIN SUPPLEMENTATION
     Route: 048
  6. NYSTATIN [Concomitant]
     Indication: INFECTION
     Dosage: SWISH AND SWALLOW
     Route: 048
  7. VICODIN [Concomitant]
     Indication: PAIN
     Dosage: 1-2 TABLETS ONCE EVERY 8 HOURS
     Route: 048
  8. LORAZEPAM [Concomitant]
     Indication: ANXIETY
     Route: 048
  9. ESZOPICLONE [Concomitant]
     Indication: INSOMNIA
     Route: 048
  10. NAPROSYN [Concomitant]
     Indication: PAIN
     Route: 048
  11. CYCLOBENAZAPRINE [Concomitant]
     Indication: ANXIETY
     Route: 048

REACTIONS (2)
  - INJECTION SITE HAEMATOMA [None]
  - INJECTION SITE IRRITATION [None]
